FAERS Safety Report 21298179 (Version 2)
Quarter: 2022Q3

REPORT INFORMATION
  Report Type: Spontaneous
  Country: US (occurrence: US)
  Receive Date: 20220906
  Receipt Date: 20220930
  Transmission Date: 20221026
  Serious: No
  Sender: FDA-Public Use
  Company Number: US-PFIZER INC-PV202200055599

PATIENT
  Age: 57 Year
  Sex: Female

DRUGS (1)
  1. XELJANZ XR [Suspect]
     Active Substance: TOFACITINIB CITRATE
     Indication: Rheumatoid arthritis
     Dosage: 11 MG, DAILY
     Route: 048
     Dates: start: 20220828

REACTIONS (9)
  - Nasopharyngitis [Recovering/Resolving]
  - Diarrhoea [Unknown]
  - Pain [Unknown]
  - Swelling [Unknown]
  - Joint swelling [Recovering/Resolving]
  - Peripheral swelling [Unknown]
  - Headache [Unknown]
  - Discouragement [Unknown]
  - Depression [Unknown]
